FAERS Safety Report 8932838 (Version 1)
Quarter: 2012Q4

REPORT INFORMATION
  Report Type: 
  Country: US (occurrence: US)
  Receive Date: 20121129
  Receipt Date: 20121129
  Transmission Date: 20130627
  Serious: Yes (Other)
  Sender: FDA-Public Use
  Company Number: US-BAYER-2012-124790

PATIENT
  Age: 63 Year
  Sex: Female

DRUGS (1)
  1. BETASERON [Suspect]
     Indication: MS
     Dosage: Daily dose 0,25 QOD
     Dates: start: 1994

REACTIONS (7)
  - Multiple sclerosis [None]
  - Injection site injury [None]
  - Dyspnoea [None]
  - Heart rate increased [None]
  - Feeling hot [None]
  - Feeling cold [None]
  - Chills [None]
